FAERS Safety Report 7125931-3 (Version None)
Quarter: 2010Q4

REPORT INFORMATION
  Report Type: 
  Country: None (occurrence: None)
  Receive Date: 20101112
  Receipt Date: 20101101
  Transmission Date: 20110411
  Serious: Yes (Other)
  Sender: FDA-Public Use
  Company Number: 727481

PATIENT
  Age: 60 Year
  Sex: Male
  Weight: 77.27 kg

DRUGS (4)
  1. NIPENT [Suspect]
     Indication: CHRONIC LYMPHOCYTIC LEUKAEMIA
     Dosage: 7.7 MG, EVERY 21 DAYS, INTRAVENOUS
     Route: 042
     Dates: start: 20100824, end: 20100824
  2. CYTOXAN [Suspect]
     Indication: CHRONIC LYMPHOCYTIC LEUKAEMIA
  3. ACYCLOVIR [Concomitant]
  4. BACTRIM [Concomitant]

REACTIONS (3)
  - HAEMODIALYSIS [None]
  - RENAL FAILURE ACUTE [None]
  - TUMOUR LYSIS SYNDROME [None]
